FAERS Safety Report 5723825-9 (Version None)
Quarter: 2008Q2

REPORT INFORMATION
  Report Type: 
  Country: None (occurrence: None)
  Receive Date: 20080429
  Receipt Date: 20080429
  Transmission Date: 20081010
  Serious: Yes (Hospitalization)
  Sender: FDA-Public Use
  Company Number: None

PATIENT
  Age: 21 Year
  Sex: Female
  Weight: 68.0396 kg

DRUGS (2)
  1. LEXAPRO [Suspect]
     Indication: ANXIETY
     Dosage: ONE TABLET ONCE A DAY
     Dates: start: 20071101, end: 20080401
  2. LEXAPRO [Suspect]
     Indication: DEPRESSION
     Dosage: ONE TABLET ONCE A DAY
     Dates: start: 20071101, end: 20080401

REACTIONS (3)
  - AMNESIA [None]
  - BLOOD GLUCOSE DECREASED [None]
  - WEIGHT INCREASED [None]
